FAERS Safety Report 5732367-6 (Version None)
Quarter: 2008Q2

REPORT INFORMATION
  Report Type: 
  Country: None (occurrence: None)
  Receive Date: 20080508
  Receipt Date: 20080428
  Transmission Date: 20081010
  Serious: Yes (Hospitalization)
  Sender: FDA-Public Use
  Company Number: NL-PFIZER INC-2008036823

PATIENT
  Age: 40 Year
  Sex: Male

DRUGS (1)
  1. HUMATROPE [Suspect]
     Indication: OFF LABEL USE
     Dosage: DAILY DOSE:.6MG
     Route: 058

REACTIONS (1)
  - PANCREATITIS ACUTE [None]
